FAERS Safety Report 24568048 (Version 3)
Quarter: 2024Q4

REPORT INFORMATION
  Report Type: Spontaneous
  Country: AT (occurrence: AT)
  Receive Date: 20241031
  Receipt Date: 20241231
  Transmission Date: 20250115
  Serious: Yes (Other)
  Sender: REGENERON
  Company Number: AT-BAYER-2024A137200

PATIENT
  Age: 65 Year
  Sex: Male

DRUGS (1)
  1. EYLEA HD [Suspect]
     Active Substance: AFLIBERCEPT
     Indication: Product used for unknown indication
     Dosage: SOLUTION FOR INJECTION, 114.3 MG/ML
     Route: 031

REACTIONS (1)
  - Uveitis [Unknown]
